FAERS Safety Report 23817605 (Version 1)
Quarter: 2024Q2

REPORT INFORMATION
  Report Type: Spontaneous
  Country: US (occurrence: US)
  Receive Date: 20240505
  Receipt Date: 20240505
  Transmission Date: 20240716
  Serious: No
  Sender: FDA-Public Use
  Company Number: US-BAUSCHBL-2024BNL026245

PATIENT

DRUGS (1)
  1. FLURBIPROFEN SODIUM [Suspect]
     Active Substance: FLURBIPROFEN SODIUM
     Indication: Product used for unknown indication
     Route: 065

REACTIONS (3)
  - Product delivery mechanism issue [Unknown]
  - Product quality issue [Unknown]
  - Wrong dose [Unknown]
